FAERS Safety Report 8538506-6 (Version None)
Quarter: 2012Q3

REPORT INFORMATION
  Report Type: 
  Country: None (occurrence: None)
  Receive Date: 20120718
  Receipt Date: 20120718
  Transmission Date: 20120928
  Serious: Yes (Hospitalization, Other)
  Sender: FDA-Public Use
  Company Number: None

PATIENT
  Age: 64 Year
  Sex: Female
  Weight: 77.1115 kg

DRUGS (1)
  1. XARELTO [Suspect]
     Indication: HIP ARTHROPLASTY
     Dosage: 1 TABLET DAILY MOUTH
     Route: 048
     Dates: start: 20120213, end: 20120222

REACTIONS (1)
  - GASTROINTESTINAL HAEMORRHAGE [None]
